FAERS Safety Report 6173229-2 (Version None)
Quarter: 2009Q2

REPORT INFORMATION
  Report Type: 
  Country: None (occurrence: None)
  Receive Date: 20090424
  Receipt Date: 20081228
  Transmission Date: 20091009
  Serious: No
  Sender: FDA-Public Use
  Company Number: ALL1-2008-03635

PATIENT
  Age: 29 Year
  Sex: Female
  Weight: 49.9 kg

DRUGS (3)
  1. VYVANSE [Suspect]
     Indication: ATTENTION DEFICIT/HYPERACTIVITY DISORDER
     Dosage: 50 MG, 1X/DAY:QD, ORAL
     Route: 048
     Dates: start: 20081219, end: 20081223
  2. PROZAC [Concomitant]
  3. COPAXONE [Concomitant]

REACTIONS (5)
  - ANGER [None]
  - CRYING [None]
  - HYPERAESTHESIA [None]
  - MOOD ALTERED [None]
  - PHOTOPHOBIA [None]
